FAERS Safety Report 6836338-8 (Version None)
Quarter: 2010Q3

REPORT INFORMATION
  Report Type: 
  Country: None (occurrence: None)
  Receive Date: 20100713
  Receipt Date: 20100702
  Transmission Date: 20110219
  Serious: Yes (Disabling)
  Sender: FDA-Public Use
  Company Number: US-MERCK-1007USA00521

PATIENT
  Sex: Female

DRUGS (2)
  1. FOSAMAX [Suspect]
     Route: 048
     Dates: start: 20000101, end: 20060101
  2. BONIVA [Suspect]
     Route: 065
     Dates: start: 20060101, end: 20080701

REACTIONS (2)
  - JAW DISORDER [None]
  - OSTEONECROSIS OF JAW [None]
